FAERS Safety Report 4332183-6 (Version None)
Quarter: 2004Q1

REPORT INFORMATION
  Report Type: 
  Country: None (occurrence: None)
  Receive Date: 20040331
  Receipt Date: 20040317
  Transmission Date: 20041129
  Serious: Yes (Congenital Anomaly)
  Sender: FDA-Public Use
  Company Number: FR_040303746

PATIENT
  Age: 1 Day

DRUGS (6)
  1. CEFACLOR [Suspect]
  2. ACETAMINOPHEN [Concomitant]
  3. ERYTHROCIN STEARATE [Concomitant]
  4. MAXILASE (AMYLASE) [Concomitant]
  5. NASONEX [Concomitant]
  6. RHINOFLUIMUCIL [Concomitant]

REACTIONS (4)
  - ABORTION INDUCED [None]
  - LIMB REDUCTION DEFECT [None]
  - MATERNAL DRUGS AFFECTING FOETUS [None]
  - RETROGNATHIA [None]
